FAERS Safety Report 9784964 (Version 2)
Quarter: 2013Q4

REPORT INFORMATION
  Report Type: Spontaneous
  Country: US (occurrence: US)
  Receive Date: 20131227
  Receipt Date: 20131227
  Transmission Date: 20140711
  Serious: Yes (Hospitalization, Other)
  Sender: FDA-Public Use
  Company Number: US-BRISTOL-MYERS SQUIBB COMPANY-19434539

PATIENT
  Age: 61 Year
  Sex: Female

DRUGS (21)
  1. ABATACEPT SUBQ INJECTION 125MG/ML [Suspect]
     Indication: RHEUMATOID ARTHRITIS
     Dosage: LAST INJ IN OCT2013
     Route: 058
  2. KRILL OIL [Concomitant]
     Dosage: CAP
  3. PREDNISONE [Concomitant]
     Dosage: TAB 5MG
  4. PLAQUENIL [Concomitant]
     Dosage: TAB 200MG
  5. PRILOSEC [Concomitant]
     Dosage: CAP
  6. TEMAZEPAM [Concomitant]
     Dosage: CAP
  7. LIPITOR [Concomitant]
     Dosage: TAB 40MG
  8. MULTIVITAMIN [Concomitant]
     Dosage: TAB
  9. MAGNESIUM [Concomitant]
     Dosage: CAPS
  10. VITAMIN D [Concomitant]
     Dosage: 1DF=CAP 1000UNIT
  11. CALCIUM + VITAMIN D [Concomitant]
     Dosage: TAB
  12. BIOTIN [Concomitant]
     Dosage: 1DF=5000 CAP
  13. FOLIC ACID [Concomitant]
     Dosage: TAB
  14. MUCINEX [Concomitant]
     Dosage: 1DF=DM TAB 60-1200
  15. ALLEGRA [Concomitant]
     Dosage: TAB
  16. OCUVITE [Concomitant]
     Dosage: TAB
  17. BUDESONIDE [Concomitant]
     Dosage: BUDESONIDE SUS 0.5MG/2
  18. CYMBALTA [Concomitant]
     Dosage: CAP
  19. NYSTATIN [Concomitant]
     Dosage: NYSTATIN SUS 100000
  20. IBUPROFEN [Concomitant]
     Dosage: CAP
  21. LORTAB [Concomitant]
     Dosage: LORTAB 7.5 TAB

REACTIONS (3)
  - Rheumatoid arthritis [Unknown]
  - Arthropathy [Unknown]
  - Product quality issue [Unknown]
